FAERS Safety Report 7269018-8 (Version None)
Quarter: 2011Q1

REPORT INFORMATION
  Report Type: 
  Country: None (occurrence: None)
  Receive Date: 20110202
  Receipt Date: 20110120
  Transmission Date: 20110831
  Serious: Yes (Other)
  Sender: FDA-Public Use
  Company Number: IE-BIOGENIDEC-2011BI000911

PATIENT
  Age: 41 Year
  Sex: Female

DRUGS (9)
  1. CODALAX [Concomitant]
  2. PROZAC [Concomitant]
  3. TYSABRI [Suspect]
     Indication: PRODUCT USED FOR UNKNOWN INDICATION
     Route: 042
     Dates: end: 20101101
  4. FRUMIL [Concomitant]
  5. PHOSPHATE ENEMAS [Concomitant]
  6. LIPITOR [Concomitant]
  7. ZOTON [Concomitant]
  8. TOILAX [Concomitant]
  9. ACTONEL [Concomitant]

REACTIONS (1)
  - PROGRESSIVE MULTIFOCAL LEUKOENCEPHALOPATHY [None]
